FAERS Safety Report 13901929 (Version 1)
Quarter: 2017Q3

REPORT INFORMATION
  Report Type: Spontaneous
  Country: US (occurrence: US)
  Receive Date: 20170824
  Receipt Date: 20170824
  Transmission Date: 20171127
  Serious: No
  Sender: FDA-Public Use
  Company Number: US-ROCHE-1130026

PATIENT
  Sex: Female

DRUGS (3)
  1. HERCEPTIN [Suspect]
     Active Substance: TRASTUZUMAB
     Indication: BREAST CANCER
     Dosage: 260 (UNIT:NOT REPORTED) AS LOADING DOSE
     Route: 065
     Dates: start: 19990416
  2. TAXOL [Concomitant]
     Active Substance: PACLITAXEL
  3. HERCEPTIN [Suspect]
     Active Substance: TRASTUZUMAB
     Dosage: 130 (UNIT NOT REPORTED) AS MAINTAINANACE DOSE
     Route: 065

REACTIONS (2)
  - Pain [Unknown]
  - Hot flush [Unknown]
